FAERS Safety Report 15350250 (Version 1)
Quarter: 2018Q3

REPORT INFORMATION
  Report Type: Spontaneous
  Country: FR (occurrence: FR)
  Receive Date: 20180905
  Receipt Date: 20180905
  Transmission Date: 20181010
  Serious: Yes (Hospitalization)
  Sender: FDA-Public Use
  Company Number: FR-CONCORDIA PHARMACEUTICALS INC.-E2B_00016529

PATIENT
  Age: 90 Year
  Sex: Male
  Weight: 50 kg

DRUGS (7)
  1. ELIQUIS [Concomitant]
     Active Substance: APIXABAN
  2. INSPRA 25 MG, COMPRIM? PELLICUL? [Concomitant]
  3. DIGOXIN. [Suspect]
     Active Substance: DIGOXIN
     Indication: ATRIAL FIBRILLATION
     Route: 048
     Dates: end: 20180719
  4. LASILIX 40 MG, COMPRIM? S?CABLE [Concomitant]
     Active Substance: FUROSEMIDE
  5. DIFFU K, G?LULE [Concomitant]
     Active Substance: POTASSIUM CHLORIDE
  6. RAMIPRIL. [Concomitant]
     Active Substance: RAMIPRIL
  7. BISOCE 1,25 MG, COMPRIM? PELLICUL? [Suspect]
     Active Substance: BISOPROLOL FUMARATE
     Indication: ATRIAL FIBRILLATION
     Route: 048

REACTIONS (3)
  - Bradycardia [Recovered/Resolved with Sequelae]
  - Malaise [Recovered/Resolved]
  - Fall [Recovered/Resolved]

NARRATIVE: CASE EVENT DATE: 20180719
